FAERS Safety Report 8414896-X (Version None)
Quarter: 2012Q2

REPORT INFORMATION
  Report Type: 
  Country: None (occurrence: None)
  Receive Date: 20120601
  Receipt Date: 20120601
  Transmission Date: 20120825
  Serious: Yes (Death, Other)
  Sender: FDA-Public Use
  Company Number: None

PATIENT
  Sex: Male
  Weight: 68.0396 kg

DRUGS (1)
  1. ESCITALOPRAM [Suspect]
     Indication: OBSESSIVE-COMPULSIVE DISORDER
     Dosage: 20MG QDAY PO
     Route: 048
     Dates: start: 20120313, end: 20120323

REACTIONS (3)
  - PRODUCT SUBSTITUTION ISSUE [None]
  - COMPLETED SUICIDE [None]
  - GUN SHOT WOUND [None]
